FAERS Safety Report 22342226 (Version 2)
Quarter: 2023Q2

REPORT INFORMATION
  Report Type: Spontaneous
  Country: DE (occurrence: DE)
  Receive Date: 20230519
  Receipt Date: 20230528
  Transmission Date: 20230722
  Serious: Yes (Hospitalization, Other)
  Sender: FDA-Public Use
  Company Number: DE-MLMSERVICE-20230420-4238539-1

PATIENT
  Age: 68 Year
  Sex: Male

DRUGS (3)
  1. EMTRICITABINE\TENOFOVIR DISOPROXIL [Suspect]
     Active Substance: EMTRICITABINE\TENOFOVIR DISOPROXIL
     Indication: Prophylaxis against HIV infection
     Dosage: UNK
     Route: 065
  2. EMTRICITABINE\TENOFOVIR DISOPROXIL [Suspect]
     Active Substance: EMTRICITABINE\TENOFOVIR DISOPROXIL
     Indication: HIV infection
  3. CABOTEGRAVIR [Concomitant]
     Active Substance: CABOTEGRAVIR
     Indication: Prophylaxis against HIV infection
     Dosage: 600 MILLIGRAM 600 MILLIGRAM (600MG ON MONTH 1, 2, 4 AND EVERY 2 MONTHS, THEREAFTER)
     Route: 030

REACTIONS (4)
  - Renal failure [Recovering/Resolving]
  - Tubulointerstitial nephritis [Recovering/Resolving]
  - End stage renal disease [Not Recovered/Not Resolved]
  - Renal impairment [Recovering/Resolving]
